FAERS Safety Report 23445966 (Version 1)
Quarter: 2024Q1

REPORT INFORMATION
  Report Type: Spontaneous
  Country: US (occurrence: US)
  Receive Date: 20240126
  Receipt Date: 20240126
  Transmission Date: 20240409
  Serious: Yes (Death, Other)
  Sender: FDA-Public Use
  Company Number: US-BRISTOL-MYERS SQUIBB COMPANY-2024-013543

PATIENT
  Age: 44 Year
  Sex: Male
  Weight: 64.2 kg

DRUGS (5)
  1. ELIQUIS [Suspect]
     Active Substance: APIXABAN
     Indication: Product used for unknown indication
     Route: 048
     Dates: start: 20231027
  2. GEMCAL [CALCITONIN, SALMON] [Concomitant]
     Indication: Product used for unknown indication
  3. CAMPTOSAR [Concomitant]
     Active Substance: IRINOTECAN HYDROCHLORIDE
     Indication: Product used for unknown indication
  4. ELOXATIN [Concomitant]
     Active Substance: OXALIPLATIN
     Indication: Product used for unknown indication
  5. CALCIUM [Concomitant]
     Active Substance: CALCIUM
     Indication: Pancreatic carcinoma

REACTIONS (1)
  - Pancreatic carcinoma [Fatal]
